FAERS Safety Report 7049233-9 (Version None)
Quarter: 2010Q4

REPORT INFORMATION
  Report Type: 
  Country: None (occurrence: None)
  Receive Date: 20101018
  Receipt Date: 20101005
  Transmission Date: 20110411
  Serious: Yes (Death, Hospitalization)
  Sender: FDA-Public Use
  Company Number: GB-ROCHE-631620

PATIENT
  Sex: Female
  Weight: 44.2 kg

DRUGS (3)
  1. CAPECITABINE [Suspect]
     Route: 048
     Dates: start: 20090106, end: 20090122
  2. OXALIPLATIN [Suspect]
     Route: 041
     Dates: start: 20090106, end: 20090122
  3. BLINDED AVE5026 [Concomitant]
     Route: 058
     Dates: start: 20090106, end: 20090126

REACTIONS (2)
  - COLON CANCER [None]
  - VOMITING [None]
